FAERS Safety Report 17894036 (Version 23)
Quarter: 2022Q4

REPORT INFORMATION
  Report Type: Spontaneous
  Country: GB (occurrence: GB)
  Receive Date: 20200615
  Receipt Date: 20221107
  Transmission Date: 20230112
  Serious: Yes (Death, Other)
  Sender: FDA-Public Use
  Company Number: GB-009507513-2006GBR000756

PATIENT
  Age: 57 Year
  Sex: Male

DRUGS (60)
  1. ACYCLOVIR [Suspect]
     Active Substance: ACYCLOVIR
     Indication: Product used for unknown indication
     Dosage: 400 MILLIGRAM, ONCE A DAY
     Route: 065
  2. ACYCLOVIR [Suspect]
     Active Substance: ACYCLOVIR
     Dosage: TWO TIMES A DAY
     Route: 065
  3. ACYCLOVIR [Suspect]
     Active Substance: ACYCLOVIR
     Dosage: 2 DOSAGE FORM, ONCE A DAY
     Route: 065
  4. ACYCLOVIR [Suspect]
     Active Substance: ACYCLOVIR
     Dosage: 1 DOSAGE FORM, ONCE A DAY
     Route: 065
  5. ACYCLOVIR [Suspect]
     Active Substance: ACYCLOVIR
     Dosage: UNK, ONCE A DAY
     Route: 065
  6. LAMIVUDINE [Suspect]
     Active Substance: LAMIVUDINE
     Indication: Product used for unknown indication
     Dosage: 150 MILLIGRAM, TWO TIMES A DAY (300 MG ONCE A DAY)
     Route: 065
  7. LAMIVUDINE [Suspect]
     Active Substance: LAMIVUDINE
     Dosage: ONCE A DAY (BID ( 2X/DAY))
     Route: 065
  8. LAMIVUDINE [Suspect]
     Active Substance: LAMIVUDINE
     Dosage: 150 MILLIGRAM, ONCE A DAY (150 MILLIGRAM, QD(150 MILLIGRAM, QD))
     Route: 065
  9. LAMIVUDINE [Suspect]
     Active Substance: LAMIVUDINE
     Dosage: 600 MILLIGRAM, ONCE A DAY
     Route: 065
  10. LAMIVUDINE [Suspect]
     Active Substance: LAMIVUDINE
     Dosage: ONCE A DAY
     Route: 065
  11. LAMIVUDINE [Suspect]
     Active Substance: LAMIVUDINE
     Dosage: 300 MILLIGRAM, ONCE A DAY(150 MILLIGRAM, BID)
     Route: 065
  12. LAMIVUDINE [Suspect]
     Active Substance: LAMIVUDINE
     Dosage: 2 DOSAGE FORM, ONCE A DAY
     Route: 065
  13. LAMIVUDINE [Suspect]
     Active Substance: LAMIVUDINE
     Dosage: 1 DOSAGE FORM, ONCE A DAY
     Route: 065
  14. TENOFOVIR DISOPROXIL [Suspect]
     Active Substance: TENOFOVIR DISOPROXIL
     Indication: Product used for unknown indication
     Dosage: 245 MILLIGRAM, TWO TIMES A DAY
     Route: 065
  15. TENOFOVIR DISOPROXIL [Suspect]
     Active Substance: TENOFOVIR DISOPROXIL
     Dosage: 150 MILLIGRAM, ONCE A DAY (150 MILLIGRAM, QD(STRENGTH: 245 MG))
     Route: 065
  16. TENOFOVIR DISOPROXIL [Suspect]
     Active Substance: TENOFOVIR DISOPROXIL
     Dosage: 245 MILLIGRAM, ONCE A DAY
     Route: 065
  17. TENOFOVIR DISOPROXIL [Suspect]
     Active Substance: TENOFOVIR DISOPROXIL
     Dosage: 1 DOSAGE FORM, ONCE A DAY
     Route: 065
  18. TENOFOVIR DISOPROXIL [Suspect]
     Active Substance: TENOFOVIR DISOPROXIL
     Dosage: UNK, ONCE A DAY
     Route: 065
  19. RAMIPRIL [Suspect]
     Active Substance: RAMIPRIL
     Indication: Product used for unknown indication
     Dosage: UNK
     Route: 065
  20. DARUNAVIR [Suspect]
     Active Substance: DARUNAVIR
     Indication: Product used for unknown indication
     Dosage: 2 DOSAGE FORM, ONCE A DAY (2X/DAY )
     Route: 065
  21. DARUNAVIR [Suspect]
     Active Substance: DARUNAVIR
     Dosage: 400 MILLIGRAM, ONCE A DAY
     Route: 048
  22. DARUNAVIR [Suspect]
     Active Substance: DARUNAVIR
     Dosage: 600 MILLIGRAM, ONCE A DAY
     Route: 065
  23. DARUNAVIR [Suspect]
     Active Substance: DARUNAVIR
     Dosage: 600 MILLIGRAM, ONCE A DAY
     Route: 048
  24. DARUNAVIR [Suspect]
     Active Substance: DARUNAVIR
     Dosage: UNK, ONCE A DAY
     Route: 065
  25. DARUNAVIR [Suspect]
     Active Substance: DARUNAVIR
     Dosage: UNK, TWO TIMES A DAY
     Route: 065
  26. ISENTRESS [Suspect]
     Active Substance: RALTEGRAVIR POTASSIUM
     Indication: Product used for unknown indication
     Dosage: UNK, TWO TIMES A DAY
     Route: 048
  27. ISENTRESS [Suspect]
     Active Substance: RALTEGRAVIR POTASSIUM
     Dosage: 2 DOSAGE FORM, ONCE A DAY (QD(1 DOSAGE FORM, BID ) )
     Route: 065
  28. ISENTRESS [Suspect]
     Active Substance: RALTEGRAVIR POTASSIUM
     Dosage: 1 DOSAGE FORM, ONCE A DAY(1 DF, 2X/DAY (ONCE A DAY, BID))
     Route: 048
  29. ISENTRESS [Suspect]
     Active Substance: RALTEGRAVIR POTASSIUM
     Dosage: UNK
     Route: 065
  30. ISENTRESS [Suspect]
     Active Substance: RALTEGRAVIR POTASSIUM
     Dosage: 400 MILLIGRAM, ONCE A DAY
     Route: 048
  31. NORVIR [Suspect]
     Active Substance: RITONAVIR
     Indication: Product used for unknown indication
     Dosage: 100 MILLIGRAM, ONCE A DAY
     Route: 065
  32. NORVIR [Suspect]
     Active Substance: RITONAVIR
     Dosage: 200 MILLIGRAM, ONCE A DAY(100 MILLIGRAM, BID )
     Route: 065
  33. NORVIR [Suspect]
     Active Substance: RITONAVIR
     Dosage: UNK, ONCE A DAY
     Route: 065
  34. NORVIR [Suspect]
     Active Substance: RITONAVIR
     Dosage: 100 MILLIGRAM, TWO TIMES A DAY
     Route: 065
  35. NORVIR [Suspect]
     Active Substance: RITONAVIR
     Dosage: 1 DOSAGE FORM, ONCE A DAY
     Route: 065
  36. PREZISTA [Suspect]
     Active Substance: DARUNAVIR ETHANOLATE
     Indication: Product used for unknown indication
     Dosage: 600 MILLIGRAM, ONCE A DAY
     Route: 048
  37. PREZISTA [Suspect]
     Active Substance: DARUNAVIR ETHANOLATE
     Dosage: 600 MILLIGRAM, TWO TIMES A DAY
     Route: 065
  38. PREZISTA [Suspect]
     Active Substance: DARUNAVIR ETHANOLATE
     Dosage: 1 DOSAGE FORM, ONCE A DAY
     Route: 065
  39. PREZISTA [Suspect]
     Active Substance: DARUNAVIR ETHANOLATE
     Dosage: 2 DOSAGE FORM, ONCE A DAY
     Route: 065
  40. PREZISTA [Suspect]
     Active Substance: DARUNAVIR ETHANOLATE
     Dosage: UNK UNK, ONCE A DAY (QD (UNK, 1X/DAY))
     Route: 048
  41. PREZISTA [Suspect]
     Active Substance: DARUNAVIR ETHANOLATE
     Dosage: UNK UNK, ONCE A DAY (QD (UNK, 1X/DAY))
     Route: 065
  42. RALTEGRAVIR [Suspect]
     Active Substance: RALTEGRAVIR
     Indication: Product used for unknown indication
     Dosage: 400 MILLIGRAM, ONCE A DAY
     Route: 048
  43. RALTEGRAVIR [Suspect]
     Active Substance: RALTEGRAVIR
     Dosage: 2 DOSAGE FORM, ONCE A DAY
     Route: 065
  44. RALTEGRAVIR [Suspect]
     Active Substance: RALTEGRAVIR
     Dosage: 400 MILLIGRAM, TWO TIMES A DAY
     Route: 048
  45. RALTEGRAVIR [Suspect]
     Active Substance: RALTEGRAVIR
     Dosage: UNK, ONCE A DAY
     Route: 065
  46. RALTEGRAVIR POTASSIUM [Suspect]
     Active Substance: RALTEGRAVIR POTASSIUM
     Indication: Product used for unknown indication
     Dosage: 400 MILLIGRAM, ONCE A DAY
     Route: 048
  47. RALTEGRAVIR POTASSIUM [Suspect]
     Active Substance: RALTEGRAVIR POTASSIUM
     Dosage: 2 DOSAGE FORM, ONCE A DAY
     Route: 048
  48. RALTEGRAVIR POTASSIUM [Suspect]
     Active Substance: RALTEGRAVIR POTASSIUM
     Dosage: 1 DOSAGE FORM, ONCE A DAY
     Route: 065
  49. RALTEGRAVIR POTASSIUM [Suspect]
     Active Substance: RALTEGRAVIR POTASSIUM
     Dosage: UNK, ONCE A DAY
     Route: 048
  50. VIREAD [Suspect]
     Active Substance: TENOFOVIR DISOPROXIL FUMARATE
     Indication: Product used for unknown indication
     Dosage: 245 MILLIGRAM, ONCE A DAY
     Route: 065
  51. VIREAD [Suspect]
     Active Substance: TENOFOVIR DISOPROXIL FUMARATE
     Dosage: 1 DOSAGE FORM, ONCE A DAY
     Route: 065
  52. VIREAD [Suspect]
     Active Substance: TENOFOVIR DISOPROXIL FUMARATE
     Dosage: 150 MILLIGRAM, ONCE A DAY
     Route: 065
  53. LAMIVUDINE [Suspect]
     Active Substance: LAMIVUDINE
     Indication: Product used for unknown indication
     Dosage: 300 MILLIGRAM, ONCE A DAY
     Route: 065
  54. LAMIVUDINE [Suspect]
     Active Substance: LAMIVUDINE
     Dosage: TWO TIMES A DAY
     Route: 065
  55. LAMIVUDINE [Suspect]
     Active Substance: LAMIVUDINE
     Dosage: 2 DOSAGE FORM, ONCE A DAY
     Route: 065
  56. LAMIVUDINE [Suspect]
     Active Substance: LAMIVUDINE
     Dosage: 1 DOSAGE FORM, ONCE A DAY
     Route: 065
  57. LAMIVUDINE [Suspect]
     Active Substance: LAMIVUDINE
     Dosage: 150 MILLIGRAM, ONCE A DAY
     Route: 065
  58. LAMIVUDINE [Suspect]
     Active Substance: LAMIVUDINE
     Dosage: 600 MILLIGRAM, ONCE A DAY
     Route: 065
  59. LAMIVUDINE [Suspect]
     Active Substance: LAMIVUDINE
     Dosage: 300 MILLIGRAM, ONCE A DAY (150 MILLIGRAM, BID)
     Route: 065
  60. RAMIPRIL [Concomitant]
     Active Substance: RAMIPRIL
     Indication: Product used for unknown indication
     Dosage: UNK
     Route: 065

REACTIONS (3)
  - Death [Fatal]
  - Brain stem stroke [Fatal]
  - Fall [Fatal]

NARRATIVE: CASE EVENT DATE: 20200401
